FAERS Safety Report 4342448-X (Version None)
Quarter: 2004Q1

REPORT INFORMATION
  Report Type: 
  Country: None (occurrence: None)
  Receive Date: 20040213
  Receipt Date: 20031103
  Transmission Date: 20041129
  Serious: Yes (Other)
  Sender: FDA-Public Use
  Company Number: 342879

PATIENT
  Age: 31 Year
  Sex: Female
  Weight: 43.1 kg

DRUGS (6)
  1. PEGASYS [Suspect]
     Indication: HEPATITIS C
     Dosage: 180 MCG 1 PER WEEK SUBCUTANEOUS
     Route: 058
     Dates: start: 20030215
  2. REBETOL [Suspect]
     Indication: HEPATITIS C
     Dosage: 800 MG DAILY ORAL
     Route: 048
     Dates: start: 20020915
  3. COPEGUS [Suspect]
     Indication: DRUG USE FOR UNKNOWN INDICATION
  4. DARVOCET [Concomitant]
  5. KLONOPIN [Concomitant]
  6. XANAX [Concomitant]

REACTIONS (8)
  - ABDOMINAL PAIN [None]
  - ALANINE AMINOTRANSFERASE INCREASED [None]
  - ASPARTATE AMINOTRANSFERASE INCREASED [None]
  - DIARRHOEA [None]
  - EYE IRRITATION [None]
  - FATIGUE [None]
  - FEELING COLD [None]
  - PYREXIA [None]
